FAERS Safety Report 4339122-2 (Version None)
Quarter: 2004Q2

REPORT INFORMATION
  Report Type: 
  Country: None (occurrence: None)
  Receive Date: 20040402
  Receipt Date: 20040402
  Transmission Date: 20050107
  Serious: Yes (Other)
  Sender: FDA-Public Use
  Company Number: US-JNJFOC-20040400791

PATIENT
  Age: 52 Year
  Sex: Male

DRUGS (5)
  1. DURAGESIC [Suspect]
     Indication: PAIN
     Dosage: 50 UG/HR, 1 IN 72 HOUR, TRANSDERMAL
     Route: 062
     Dates: start: 20030301
  2. NEXIUM [Concomitant]
  3. LORAZEPAM [Concomitant]
  4. VITAMIN SUPPLEMENT (VITAMIN NOS) [Concomitant]
  5. CALCIUM SUPPLEMENT (CALCIUM) [Concomitant]

REACTIONS (3)
  - GASTRIC BYPASS [None]
  - HEPATIC CIRRHOSIS [None]
  - WEIGHT DECREASED [None]
